FAERS Safety Report 5715884-4 (Version None)
Quarter: 2008Q2

REPORT INFORMATION
  Report Type: 
  Country: None (occurrence: None)
  Receive Date: 20080424
  Receipt Date: 20080417
  Transmission Date: 20081010
  Serious: Yes (Hospitalization)
  Sender: FDA-Public Use
  Company Number: FR-AVENTIS-200811337FR

PATIENT
  Age: 83 Year
  Sex: Male

DRUGS (15)
  1. LOVENOX [Suspect]
     Route: 058
     Dates: start: 20080214, end: 20080228
  2. FLAGYL [Suspect]
     Indication: SUPERINFECTION
     Route: 042
     Dates: start: 20080213
  3. ROCEPHIN [Suspect]
     Indication: SUPERINFECTION
     Route: 042
     Dates: start: 20080228, end: 20080304
  4. INIPOMP                            /01263201/ [Suspect]
     Route: 042
     Dates: start: 20080217
  5. KARDEGIC                           /00002703/ [Concomitant]
     Route: 048
  6. STABLON [Concomitant]
     Route: 048
  7. ATARAX [Concomitant]
  8. INIPOMP                            /01263201/ [Concomitant]
  9. OROCAL D3 [Concomitant]
     Route: 048
  10. STILNOX                            /00914901/ [Concomitant]
     Route: 048
  11. SPASFON                            /00934601/ [Concomitant]
     Route: 048
  12. AVODART [Concomitant]
     Route: 048
  13. CONTRAMAL [Concomitant]
     Route: 048
  14. TARDYFERON                         /00023503/ [Concomitant]
     Route: 048
  15. MAG 2 [Concomitant]
     Route: 048

REACTIONS (1)
  - PANCYTOPENIA [None]
